FAERS Safety Report 5402319-4 (Version None)
Quarter: 2007Q3

REPORT INFORMATION
  Report Type: 
  Country: None (occurrence: None)
  Receive Date: 20070730
  Receipt Date: 20070730
  Transmission Date: 20080115
  Serious: Yes (Hospitalization)
  Sender: FDA-Public Use
  Company Number: None

PATIENT
  Sex: Female
  Weight: 97.977 kg

DRUGS (5)
  1. IMITREX STATDOSE [Suspect]
     Indication: CLUSTER HEADACHE
     Dosage: 6 MG PRN SQ
     Route: 058
     Dates: start: 20070720
  2. ZOLOFT [Suspect]
     Indication: DEPRESSION
     Dosage: 100MG QD IN AM PO
     Route: 048
  3. ZOLOFT [Suspect]
     Indication: OBSESSIVE-COMPULSIVE DISORDER
     Dosage: 100MG QD IN AM PO
     Route: 048
  4. AMBIEN [Concomitant]
  5. KLONOPIN [Concomitant]

REACTIONS (2)
  - SEROTONIN SYNDROME [None]
  - THROAT TIGHTNESS [None]
